FAERS Safety Report 6104508-2 (Version None)
Quarter: 2009Q1

REPORT INFORMATION
  Report Type: 
  Country: None (occurrence: None)
  Receive Date: 20090305
  Receipt Date: 20090304
  Transmission Date: 20090719
  Serious: Yes (Hospitalization)
  Sender: FDA-Public Use
  Company Number: US-ROXANE LABORATORIES, INC.-2009-RO-00206RO

PATIENT
  Sex: Female

DRUGS (2)
  1. PREDNISONE [Suspect]
     Indication: ASTHMA
     Route: 048
     Dates: start: 19810101, end: 20050101
  2. METHYLPREDNISOLONE 4MG TAB [Suspect]
     Indication: ASTHMA
     Route: 048
     Dates: start: 20050101, end: 20081001

REACTIONS (9)
  - ASTHMA [None]
  - BLOOD GLUCOSE INCREASED [None]
  - CUSHINGOID [None]
  - FLUID RETENTION [None]
  - MOOD SWINGS [None]
  - OEDEMA PERIPHERAL [None]
  - SWELLING FACE [None]
  - TYPE 2 DIABETES MELLITUS [None]
  - WEIGHT INCREASED [None]
